FAERS Safety Report 15219662 (Version 2)
Quarter: 2018Q4

REPORT INFORMATION
  Report Type: Spontaneous
  Country: US (occurrence: US)
  Receive Date: 20180731
  Receipt Date: 20181227
  Transmission Date: 20190204
  Serious: No
  Sender: FDA-Public Use
  Company Number: US-SA-2018SA206051

PATIENT
  Sex: Female
  Weight: 72.5 kg

DRUGS (10)
  1. PRALUENT [Suspect]
     Active Substance: ALIROCUMAB
     Indication: HYPERCHOLESTEROLAEMIA
  2. PEG 3350 [Concomitant]
     Active Substance: POLYETHYLENE GLYCOL 3350
  3. BYSTOLIC [Concomitant]
     Active Substance: NEBIVOLOL HYDROCHLORIDE
  4. SHINGRIX [Concomitant]
     Active Substance: RECOMBINANT VARICELLA ZOSTER VIRUS (VZV) GLYCOPROTEIN E
  5. PRALUENT [Suspect]
     Active Substance: ALIROCUMAB
     Indication: TYPE V HYPERLIPIDAEMIA
     Dosage: 75 MG, QOW
     Route: 058
     Dates: start: 20180720
  6. BRILINTA [Concomitant]
     Active Substance: TICAGRELOR
  7. AMOXICILLIN. [Concomitant]
     Active Substance: AMOXICILLIN
  8. TRAMADOL. [Concomitant]
     Active Substance: TRAMADOL
  9. ELECTROLYTE SOLUTIONS [ELECTROLYTES NOS] [Concomitant]
  10. HYDROCODONE/ACETAMINOPHEN [Concomitant]
     Active Substance: ACETAMINOPHEN\HYDROCODONE

REACTIONS (7)
  - Injection site pain [Recovered/Resolved]
  - Gait disturbance [Recovering/Resolving]
  - Rash [Recovering/Resolving]
  - Back pain [Recovered/Resolved]
  - Asthenia [Recovering/Resolving]
  - Injection site induration [Recovered/Resolved]
  - Erythema [Recovering/Resolving]

NARRATIVE: CASE EVENT DATE: 201807
